FAERS Safety Report 10180714 (Version 1)
Quarter: 2014Q2

REPORT INFORMATION
  Report Type: Spontaneous
  Country: US (occurrence: US)
  Receive Date: 20140519
  Receipt Date: 20140519
  Transmission Date: 20141212
  Serious: Yes (Hospitalization, Other)
  Sender: FDA-Public Use
  Company Number: US-BAYER-2014-068806

PATIENT
  Sex: Female

DRUGS (2)
  1. MIDOL MENSTRUAL COMPLETE FORMULA [Suspect]
     Dosage: UNK
     Route: 048
  2. MIDOL MENSTRUAL COMPLETE FORMULA [Suspect]
     Dosage: INGESTED WHOLE BOTTLE OF MIDOL
     Route: 048
     Dates: start: 20140507, end: 20140507

REACTIONS (4)
  - Suicide attempt [None]
  - Intentional overdose [None]
  - Foaming at mouth [None]
  - Hypertension [None]
